FAERS Safety Report 9384415 (Version 3)
Quarter: 2013Q3

REPORT INFORMATION
  Report Type: Report from Study
  Country: MX (occurrence: MX)
  Receive Date: 20130705
  Receipt Date: 20130711
  Transmission Date: 20140515
  Serious: Yes (Death)
  Sender: FDA-Public Use
  Company Number: PHHY2013MX070062

PATIENT
  Age: 31 Year
  Sex: Male
  Weight: 62.3 kg

DRUGS (2)
  1. GLIVEC [Suspect]
     Indication: CHRONIC MYELOID LEUKAEMIA
     Dosage: 400 MG, UNK
     Dates: start: 20060119
  2. GLIVEC [Suspect]
     Dosage: 800 MG, UNK
     Dates: start: 20130411

REACTIONS (2)
  - Death [Fatal]
  - No therapeutic response [Unknown]
